FAERS Safety Report 6506209-5 (Version None)
Quarter: 2009Q4

REPORT INFORMATION
  Report Type: 
  Country: None (occurrence: None)
  Receive Date: 20091218
  Receipt Date: 20091116
  Transmission Date: 20100525
  Serious: Yes (Other)
  Sender: FDA-Public Use
  Company Number: PHEH2009US15277

PATIENT
  Sex: Female
  Weight: 61.224 kg

DRUGS (1)
  1. RECLAST [Suspect]
     Dosage: 5 MG, UNK
     Dates: start: 20090701, end: 20090701

REACTIONS (1)
  - NEUTROPENIA [None]
